FAERS Safety Report 5064860-6 (Version None)
Quarter: 2006Q3

REPORT INFORMATION
  Report Type: 
  Country: None (occurrence: None)
  Receive Date: 20060725
  Receipt Date: 20060712
  Transmission Date: 20061208
  Serious: Yes (Hospitalization, Other)
  Sender: FDA-Public Use
  Company Number: 2006076764

PATIENT
  Age: 54 Year
  Sex: Female
  Weight: 51.2565 kg

DRUGS (5)
  1. ZYVOX [Suspect]
     Indication: COUGH
     Dosage: 1200 MG (600 MG, 2 IN 1 D), INTRAVENOUS
     Route: 042
     Dates: start: 20051107, end: 20051229
  2. ZYVOX [Suspect]
     Indication: SINUSITIS
     Dosage: 1200 MG (600 MG, 2 IN 1 D), INTRAVENOUS
     Route: 042
     Dates: start: 20051107, end: 20051229
  3. BECONASE (BECLOMETASONE DIPROPIONATE) [Concomitant]
  4. ADVAIR DISKUS 100/50 [Concomitant]
  5. MAXAIR [Concomitant]

REACTIONS (25)
  - ALANINE AMINOTRANSFERASE INCREASED [None]
  - ANAEMIA [None]
  - ASPARTATE AMINOTRANSFERASE INCREASED [None]
  - ASTHENIA [None]
  - BASOPHIL PERCENTAGE INCREASED [None]
  - BLOOD CALCIUM DECREASED [None]
  - BLOOD GLUCOSE INCREASED [None]
  - BLOOD POTASSIUM DECREASED [None]
  - BURNING SENSATION [None]
  - CARBON DIOXIDE DECREASED [None]
  - DYSSTASIA [None]
  - HYPOAESTHESIA [None]
  - INFUSION SITE THROMBOSIS [None]
  - LYMPHOCYTE PERCENTAGE DECREASED [None]
  - MALAISE [None]
  - MOVEMENT DISORDER [None]
  - NAUSEA [None]
  - NERVE INJURY [None]
  - NEUROPATHY [None]
  - NEUTROPHIL PERCENTAGE INCREASED [None]
  - PAIN [None]
  - PERFORMANCE STATUS DECREASED [None]
  - PNEUMONIA [None]
  - RED BLOOD CELL COUNT DECREASED [None]
  - WHITE BLOOD CELL COUNT DECREASED [None]
